FAERS Safety Report 8027024-X (Version None)
Quarter: 2012Q1

REPORT INFORMATION
  Report Type: 
  Country: None (occurrence: None)
  Receive Date: 20120106
  Receipt Date: 20120103
  Transmission Date: 20120608
  Serious: Yes (Death, Other)
  Sender: FDA-Public Use
  Company Number: US-PFIZER INC-2011232707

PATIENT
  Sex: Male

DRUGS (7)
  1. PLAVIX [Concomitant]
     Dosage: 75 MG, 1 DAILY
     Route: 048
  2. GLIMEPIRIDE [Concomitant]
     Dosage: 2 MG, 1, 2X/DAY
     Route: 048
     Dates: start: 20110107
  3. FUROSEMIDE [Concomitant]
     Dosage: 40 MG, 1 TAB IN AM, 1/2 TAB IN PM
     Route: 048
     Dates: start: 20110809
  4. TRAMADOL [Concomitant]
     Dosage: 50 MG, 4X/DAY
     Route: 048
     Dates: start: 20110705
  5. COREG [Concomitant]
     Dosage: 3.125 MG, 2X/DAY
     Route: 048
     Dates: start: 20110802
  6. CEFTIN [Concomitant]
     Dosage: 500 MG, 2X/DAY
     Route: 048
     Dates: start: 20110824
  7. NEURONTIN [Suspect]
     Indication: NEUROPATHY PERIPHERAL
     Dosage: 300 MG, 2X/DAY
     Route: 048
     Dates: start: 20080101, end: 20110924

REACTIONS (3)
  - RESPIRATORY FAILURE [None]
  - CARDIAC FAILURE CONGESTIVE [None]
  - MYOCARDIAL ISCHAEMIA [None]
